FAERS Safety Report 5389623-3 (Version None)
Quarter: 2007Q3

REPORT INFORMATION
  Report Type: 
  Country: None (occurrence: None)
  Receive Date: 20070717
  Receipt Date: 20070705
  Transmission Date: 20080115
  Serious: Yes (Other)
  Sender: FDA-Public Use
  Company Number: US-PFIZER INC-2007056204

PATIENT
  Sex: Female
  Weight: 68 kg

DRUGS (6)
  1. EXUBERA [Suspect]
     Indication: TYPE 2 DIABETES MELLITUS
  2. CARBIDOPA AND LEVODOPA [Concomitant]
  3. LITHIUM CARBONATE [Concomitant]
     Dosage: DAILY DOSE:450MG
  4. MIRAPEX [Concomitant]
  5. NEURONTIN [Concomitant]
  6. ALL OTHER THERAPEUTIC PRODUCTS [Concomitant]

REACTIONS (1)
  - CHEST PAIN [None]
